FAERS Safety Report 18262781 (Version 1)
Quarter: 2020Q3

REPORT INFORMATION
  Report Type: Spontaneous
  Country: CA (occurrence: CA)
  Receive Date: 20200914
  Receipt Date: 20200914
  Transmission Date: 20201103
  Serious: Yes (Hospitalization)
  Sender: FDA-Public Use
  Company Number: CA-CELGENEUS-CAN-20200901940

PATIENT
  Age: 55 Year
  Sex: Female

DRUGS (3)
  1. GEMCITABINE. [Suspect]
     Active Substance: GEMCITABINE
     Indication: PANCREATIC CARCINOMA
     Dosage: UNKNOWN DOSE
     Route: 042
     Dates: start: 20171027
  2. DURVALUMAB. [Suspect]
     Active Substance: DURVALUMAB
     Indication: PANCREATIC CARCINOMA
     Dosage: 1500 MILLIGRAM
     Route: 042
     Dates: start: 20171027, end: 20200806
  3. ABRAXANE [Suspect]
     Active Substance: PACLITAXEL
     Indication: PANCREATIC CARCINOMA
     Dosage: UNKNOWN DOSE
     Route: 042
     Dates: start: 20171027

REACTIONS (1)
  - Bile duct stenosis [Recovered/Resolved]

NARRATIVE: CASE EVENT DATE: 20200824
